FAERS Safety Report 8407190-4 (Version None)
Quarter: 2012Q2

REPORT INFORMATION
  Report Type: 
  Country: None (occurrence: None)
  Receive Date: 20120604
  Receipt Date: 20120523
  Transmission Date: 20120825
  Serious: Yes (Hospitalization)
  Sender: FDA-Public Use
  Company Number: US-ROCHE-1072206

PATIENT
  Sex: Male
  Weight: 60.382 kg

DRUGS (12)
  1. NEURONTIN [Concomitant]
     Indication: NECK PAIN
     Route: 048
     Dates: start: 20120324
  2. PEGASYS [Suspect]
     Indication: HEPATITIS C
     Dates: start: 20060426, end: 20070515
  3. FENTANYL [Concomitant]
     Indication: NECK PAIN
     Route: 062
     Dates: start: 20120323, end: 20120323
  4. COPEGUS [Suspect]
     Indication: HEPATITIS C
     Route: 048
     Dates: start: 20120322
  5. LYRICA [Concomitant]
     Indication: FIBROMYALGIA
     Route: 048
     Dates: start: 20010101
  6. LEVOTHYROXINE SODIUM [Concomitant]
     Indication: HYPOTHYROIDISM
  7. TMC435 (NS3/4A PROTEASE INHIBITOR) [Suspect]
     Indication: HEPATITIS C
     Route: 048
     Dates: start: 20120322
  8. LISINOPRIL [Concomitant]
     Indication: HYPERTENSION
  9. LEVOFLOXACIN [Concomitant]
     Route: 048
     Dates: start: 20120414, end: 20120423
  10. PEGASYS [Suspect]
     Route: 058
     Dates: start: 20120322
  11. ATORVASTATIN CALCIUM [Concomitant]
     Indication: HYPERCHOLESTEROLAEMIA
     Dates: start: 20080101
  12. IBUPROFEN [Concomitant]
     Indication: DEPRESSION
     Route: 048

REACTIONS (2)
  - ROAD TRAFFIC ACCIDENT [None]
  - THORACIC VERTEBRAL FRACTURE [None]
